FAERS Safety Report 10884340 (Version 1)
Quarter: 2015Q1

REPORT INFORMATION
  Report Type: Spontaneous
  Country: US (occurrence: None)
  Receive Date: 20150226
  Receipt Date: 20150226
  Transmission Date: 20150721
  Serious: Yes (Other)
  Sender: FDA-Public Use
  Company Number: None

PATIENT
  Age: 54 Year
  Sex: Female

DRUGS (1)
  1. AFINITOR [Suspect]
     Active Substance: EVEROLIMUS
     Indication: BREAST CANCER
     Route: 048
     Dates: start: 20140930, end: 20150224

REACTIONS (3)
  - Drug ineffective [None]
  - Intestinal obstruction [None]
  - Gastrointestinal neoplasm [None]

NARRATIVE: CASE EVENT DATE: 20150224
